FAERS Safety Report 5934136-0 (Version None)
Quarter: 2008Q4

REPORT INFORMATION
  Report Type: 
  Country: None (occurrence: None)
  Receive Date: 20081029
  Receipt Date: 20081027
  Transmission Date: 20090506
  Serious: Yes (Other)
  Sender: FDA-Public Use
  Company Number: A0753667A

PATIENT

DRUGS (1)
  1. LOVAZA [Suspect]
     Dosage: 4G UNKNOWN
     Route: 048
     Dates: start: 20080101

REACTIONS (1)
  - PSORIASIS [None]
